FAERS Safety Report 12835165 (Version 8)
Quarter: 2017Q4

REPORT INFORMATION
  Report Type: Spontaneous
  Country: GB (occurrence: GB)
  Receive Date: 20161011
  Receipt Date: 20171026
  Transmission Date: 20180320
  Serious: Yes (Death, Hospitalization)
  Sender: FDA-Public Use
  Company Number: GB-BEH-2016073395

PATIENT
  Age: 83 Year
  Sex: Female
  Weight: 54 kg

DRUGS (20)
  1. LEVOTHYROXINE SODIUM. [Concomitant]
     Active Substance: LEVOTHYROXINE SODIUM
     Dosage: 50 ?G, OD (MORNING)
     Route: 048
  2. ASPIRIN. [Concomitant]
     Active Substance: ASPIRIN
     Dosage: 75 MG, OD (MORNING)
     Route: 048
  3. MEMANTINE. [Concomitant]
     Active Substance: MEMANTINE
     Dosage: 20 MG, OD (MORNING)
     Route: 048
  4. PRIVIGEN [Suspect]
     Active Substance: HUMAN IMMUNOGLOBULIN G
     Dosage: 20 G, Q3W
     Route: 042
     Dates: start: 20050601
  5. TILDIEM [Concomitant]
     Active Substance: DILTIAZEM HYDROCHLORIDE
     Dosage: 120 MG, UNK
     Route: 065
     Dates: end: 201609
  6. GTN [Concomitant]
     Active Substance: NITROGLYCERIN
     Dosage: 2 SPRAYS, PRN (AS REQUIRED)
     Route: 060
  7. LANSOPRAZOLE. [Concomitant]
     Active Substance: LANSOPRAZOLE
     Dosage: UNK
     Route: 065
     Dates: end: 201609
  8. PARACETAMOL [Concomitant]
     Active Substance: ACETAMINOPHEN
     Dosage: 1 G, EVERY 4-6 HOURS AS REQUIRED
     Route: 048
  9. PRIVIGEN [Suspect]
     Active Substance: HUMAN IMMUNOGLOBULIN G
     Indication: SECONDARY IMMUNODEFICIENCY
     Dosage: 20 G, Q3W
     Route: 042
     Dates: start: 20160814
  10. FLUOXETINE [Concomitant]
     Active Substance: FLUOXETINE HYDROCHLORIDE
     Dosage: 20 MG, UNK
     Route: 065
     Dates: end: 201609
  11. DONEPEZIL. [Concomitant]
     Active Substance: DONEPEZIL
     Indication: DEMENTIA
     Dosage: 5 MG, OD (MORNING)
     Route: 048
  12. ISOSORBIDE MONONITRATE. [Concomitant]
     Active Substance: ISOSORBIDE MONONITRATE
     Dosage: 30 MG, OD (MORNING)
     Route: 048
  13. NICORANDIL [Concomitant]
     Active Substance: NICORANDIL
     Dosage: 20 MG, UNK
     Route: 065
     Dates: end: 201609
  14. CLARITHROMYCIN. [Concomitant]
     Active Substance: CLARITHROMYCIN
     Indication: INFECTION
     Dosage: 250 MG, UNK
     Route: 065
  15. LEVOTHYROXINE SODIUM. [Concomitant]
     Active Substance: LEVOTHYROXINE SODIUM
     Dosage: 50 ?G, OD (MORNING)
     Route: 048
  16. THYROXINE [Concomitant]
     Active Substance: LEVOTHYROXINE
     Route: 065
  17. CANDESARTAN. [Concomitant]
     Active Substance: CANDESARTAN
     Dosage: 2 MG, OD
     Route: 065
  18. ACICLOVIR [Concomitant]
     Active Substance: ACYCLOVIR
     Dosage: 400 MG, BID
     Route: 048
  19. AMOXICILLIN. [Concomitant]
     Active Substance: AMOXICILLIN
     Dosage: 500 MG, TID
     Route: 048
  20. MONOMIL [Concomitant]
     Active Substance: ISOSORBIDE MONONITRATE
     Dosage: 60 MG, UNK
     Route: 065

REACTIONS (11)
  - Bundle branch block right [Unknown]
  - Hyponatraemia [Unknown]
  - Oedema [Not Recovered/Not Resolved]
  - Acute myocardial infarction [Fatal]
  - Chest pain [Fatal]
  - Acute coronary syndrome [Fatal]
  - Left ventricular dysfunction [Fatal]
  - White blood cell count increased [Fatal]
  - Musculoskeletal pain [Unknown]
  - Troponin increased [Fatal]
  - Cardiac failure [Not Recovered/Not Resolved]

NARRATIVE: CASE EVENT DATE: 201609
